FAERS Safety Report 10429083 (Version 3)
Quarter: 2014Q4

REPORT INFORMATION
  Report Type: Spontaneous
  Country: IT (occurrence: IT)
  Receive Date: 20140904
  Receipt Date: 20141102
  Transmission Date: 20150528
  Serious: Yes (Other)
  Sender: FDA-Public Use
  Company Number: IT-ROCHE-1457837

PATIENT
  Age: 58 Year
  Sex: Male

DRUGS (7)
  1. EPREX [Concomitant]
     Active Substance: ERYTHROPOIETIN
  2. COPEGUS [Suspect]
     Active Substance: RIBAVIRIN
     Route: 048
     Dates: start: 20140124, end: 20140215
  3. CATAPRESAN [Concomitant]
     Active Substance: CLONIDINE
     Route: 065
  4. COPEGUS [Suspect]
     Active Substance: RIBAVIRIN
     Indication: HEPATIC CIRRHOSIS
     Route: 048
     Dates: start: 20140107, end: 20140123
  5. LASIX [Concomitant]
     Active Substance: FUROSEMIDE
     Route: 065
  6. PEGASYS [Suspect]
     Active Substance: PEGINTERFERON ALFA-2A
     Indication: HEPATIC CIRRHOSIS
     Route: 058
     Dates: start: 20140107, end: 20140215
  7. PRITOR (ITALY) [Concomitant]
     Route: 065

REACTIONS (1)
  - Proteinuria [Recovering/Resolving]

NARRATIVE: CASE EVENT DATE: 20140215
